FAERS Safety Report 10842425 (Version 1)
Quarter: 2015Q1

REPORT INFORMATION
  Report Type: Report from Study
  Country: CA (occurrence: CA)
  Receive Date: 20150220
  Receipt Date: 20150220
  Transmission Date: 20150721
  Serious: Yes (Hospitalization)
  Sender: FDA-Public Use
  Company Number: CA-AMGEN-CANSL2015015351

PATIENT
  Age: 43 Year
  Sex: Female

DRUGS (2)
  1. XGEVA [Suspect]
     Active Substance: DENOSUMAB
     Indication: BREAST CANCER
     Dosage: 120 MG /1.7 ML, UNK
     Route: 065
     Dates: start: 20141205
  2. NEULASTA [Suspect]
     Active Substance: PEGFILGRASTIM
     Indication: BREAST CANCER
     Dosage: 10 MG / 1 ML
     Route: 065
     Dates: start: 20141217

REACTIONS (2)
  - Confusional state [Not Recovered/Not Resolved]
  - Hospitalisation [Not Recovered/Not Resolved]
